FAERS Safety Report 4779724-2 (Version None)
Quarter: 2005Q3

REPORT INFORMATION
  Report Type: 
  Country: None (occurrence: None)
  Receive Date: 20050914
  Receipt Date: 20050627
  Transmission Date: 20060218
  Serious: Yes (Other)
  Sender: FDA-Public Use
  Company Number: 163-20785-05060388

PATIENT
  Age: 44 Year
  Sex: Male

DRUGS (6)
  1. THALOMID [Suspect]
     Indication: MULTIPLE MYELOMA
     Dosage: 100 MG, DAILY, ORAL
     Route: 048
     Dates: start: 20020401
  2. COUMADIN [Concomitant]
  3. KLOR-CON [Concomitant]
  4. BUMEX [Concomitant]
  5. LASIX [Concomitant]
  6. HEART MEDICATIONS [Concomitant]

REACTIONS (10)
  - BURNING SENSATION [None]
  - CARDIAC FAILURE [None]
  - FEELING COLD [None]
  - HYPOAESTHESIA [None]
  - NAIL DISCOLOURATION [None]
  - NEUROPATHY [None]
  - OEDEMA [None]
  - ONYCHOLYSIS [None]
  - PAIN [None]
  - RENAL FAILURE [None]
